FAERS Safety Report 19820177 (Version 1)
Quarter: 2021Q3

REPORT INFORMATION
  Report Type: Spontaneous
  Country: US (occurrence: US)
  Receive Date: 20210910
  Receipt Date: 20210910
  Transmission Date: 20211014
  Serious: Yes (Life-Threatening)
  Sender: FDA-Public Use
  Company Number: None

PATIENT
  Age: 46 Year
  Sex: Female
  Weight: 78.3 kg

DRUGS (22)
  1. DIPHENHYDRAMINE. [Concomitant]
     Active Substance: DIPHENHYDRAMINE
     Dates: start: 20210828, end: 20210828
  2. NYSTATIN. [Concomitant]
     Active Substance: NYSTATIN
     Dates: start: 20210826, end: 20210909
  3. LOPERAMIDE [Concomitant]
     Active Substance: LOPERAMIDE
     Dates: start: 20210826, end: 20210909
  4. HYDROMORPHONE [Concomitant]
     Active Substance: HYDROMORPHONE
     Dates: start: 20210828, end: 20210828
  5. MAGNESIUM SULFATE. [Concomitant]
     Active Substance: MAGNESIUM SULFATE
     Dates: start: 20210827, end: 20210828
  6. MIRTAZAPINE. [Concomitant]
     Active Substance: MIRTAZAPINE
     Dates: start: 20210826, end: 20210909
  7. TACROLIMUS. [Concomitant]
     Active Substance: TACROLIMUS
     Dates: start: 20210826, end: 20210909
  8. SODIUM PHOSPHATE [Concomitant]
     Active Substance: SODIUM PHOSPHATE
     Dates: start: 20210828, end: 20210828
  9. FAMOTIDINE. [Concomitant]
     Active Substance: FAMOTIDINE
     Dates: start: 20210826, end: 20210828
  10. POTASSIUM CHLORIDE. [Concomitant]
     Active Substance: POTASSIUM CHLORIDE
     Dates: start: 20210827, end: 20210827
  11. PROPRANOLOL [Concomitant]
     Active Substance: PROPRANOLOL HYDROCHLORIDE
     Dates: start: 20210826, end: 20210828
  12. OXYCODONE [Concomitant]
     Active Substance: OXYCODONE
     Dates: start: 20210826, end: 20210828
  13. PAROXETINE. [Concomitant]
     Active Substance: PAROXETINE
     Dates: start: 20210826, end: 20210908
  14. DAPTOMYCIN. [Concomitant]
     Active Substance: DAPTOMYCIN
     Dates: start: 20210828, end: 20210830
  15. MEROPENEM. [Concomitant]
     Active Substance: MEROPENEM
     Dates: start: 20210828, end: 20210829
  16. SULFAMETHOXAZOLE?TRIMETHOPRIM [Concomitant]
     Active Substance: SULFAMETHOXAZOLE\TRIMETHOPRIM
     Dates: start: 20210827, end: 20210908
  17. VANCOMYCIN [Concomitant]
     Active Substance: VANCOMYCIN
     Dates: start: 20210828, end: 20210828
  18. CASIRIVIMAB?IMDEVIMAB [Suspect]
     Active Substance: CASIRIVIMAB\IMDEVIMAB
     Indication: COVID-19 PROPHYLAXIS
     Dosage: ?          OTHER FREQUENCY:ONCE;?
     Route: 041
     Dates: start: 20210827, end: 20210827
  19. VALGANCICLOVIR. [Concomitant]
     Active Substance: VALGANCICLOVIR
     Dates: start: 20210826, end: 20210831
  20. GABAPENTIN. [Concomitant]
     Active Substance: GABAPENTIN
     Dates: start: 20210826, end: 20210828
  21. CLONAZEPAM. [Concomitant]
     Active Substance: CLONAZEPAM
     Dates: start: 20210826, end: 20210828
  22. MAGNESIUM LACTATE ER [Concomitant]
     Dates: start: 20210827, end: 20210831

REACTIONS (4)
  - Klebsiella bacteraemia [None]
  - Device related infection [None]
  - Pyrexia [None]
  - Mental status changes [None]

NARRATIVE: CASE EVENT DATE: 20210828
